FAERS Safety Report 15284885 (Version 1)
Quarter: 2018Q3

REPORT INFORMATION
  Report Type: Spontaneous
  Country: US (occurrence: US)
  Receive Date: 20180801
  Receipt Date: 20180801
  Transmission Date: 20181010
  Serious: No
  Sender: FDA-Public Use
  Company Number: None

PATIENT
  Age: 70 Year
  Sex: Male
  Weight: 79.97 kg

DRUGS (1)
  1. INFLIXIMAB?DYYB [Suspect]
     Active Substance: INFLIXIMAB-DYYB
     Indication: COLITIS ULCERATIVE
     Dosage: ?          OTHER FREQUENCY:OTHER;?
     Route: 042
     Dates: start: 20180112, end: 20180405

REACTIONS (9)
  - Weight decreased [None]
  - Faeces discoloured [None]
  - Infection [None]
  - Drug effect decreased [None]
  - Diarrhoea [None]
  - Nausea [None]
  - Product substitution issue [None]
  - Abnormal faeces [None]
  - Vomiting [None]

NARRATIVE: CASE EVENT DATE: 20180405
